FAERS Safety Report 9922612 (Version 1)
Quarter: 2014Q1

REPORT INFORMATION
  Report Type: Report from Study
  Country: US (occurrence: US)
  Receive Date: 20140225
  Receipt Date: 20140225
  Transmission Date: 20141002
  Serious: Yes (Death)
  Sender: FDA-Public Use
  Company Number: US-TAKEDA-2014TUS001306

PATIENT
  Sex: 0

DRUGS (2)
  1. COLCRYS [Suspect]
     Indication: GOUT
     Dosage: 0.6 MG, TID
     Route: 048
     Dates: end: 20140209
  2. ALL OTHER THERAPEUTIC PRODUCTS [Concomitant]
     Dosage: UNK

REACTIONS (1)
  - Death [Fatal]
